FAERS Safety Report 9412478 (Version 1)
Quarter: 2013Q2

REPORT INFORMATION
  Report Type: Spontaneous
  Country: GB (occurrence: None)
  Receive Date: 20130426
  Receipt Date: 20130426
  Transmission Date: 20140414
  Serious: Yes (Other)
  Sender: FDA-Public Use
  Company Number: ENTC2013-0107

PATIENT
  Sex: Male

DRUGS (7)
  1. STALEVO (LEVODOPA, CARBIDOPA, ENTACAPONE) [Suspect]
     Dosage: 4 TIMES DAILY - 5 TIMES DAILY; STRENGTH: 100
     Dates: start: 201204, end: 201210
  2. ROPINIROLE XL [Concomitant]
  3. ASPIRIN [Concomitant]
  4. SINEMET [Concomitant]
  5. RASAGILINE [Concomitant]
  6. ASACOL [Concomitant]
  7. COLIFOAM [Concomitant]

REACTIONS (1)
  - Inflammatory bowel disease [None]
